FAERS Safety Report 6987232-3 (Version None)
Quarter: 2010Q3

REPORT INFORMATION
  Report Type: 
  Country: None (occurrence: None)
  Receive Date: 20100916
  Receipt Date: 20100909
  Transmission Date: 20110219
  Serious: Yes (Death, Hospitalization)
  Sender: FDA-Public Use
  Company Number: GB-MPIJNJ-2010-04135

PATIENT

DRUGS (2)
  1. VELCADE [Suspect]
     Indication: MULTIPLE MYELOMA
     Dosage: UNK
     Dates: start: 20100422, end: 20100611
  2. DEXAMETHASONE [Concomitant]
     Dosage: 20 MG, UNK
     Dates: start: 20100422, end: 20100618

REACTIONS (3)
  - DRUG INEFFECTIVE [None]
  - MULTIPLE MYELOMA [None]
  - PNEUMONIA [None]
